FAERS Safety Report 5765990-3 (Version None)
Quarter: 2008Q2

REPORT INFORMATION
  Report Type: 
  Country: None (occurrence: None)
  Receive Date: 20080611
  Receipt Date: 20080416
  Transmission Date: 20081010
  Serious: Yes (Other)
  Sender: FDA-Public Use
  Company Number: US-BRISTOL-MYERS SQUIBB COMPANY-14154819

PATIENT
  Age: 54 Year
  Sex: Female
  Weight: 41 kg

DRUGS (4)
  1. SINEMET [Suspect]
  2. LYRICA [Suspect]
     Indication: DYSTONIA
     Dates: start: 20070606
  3. KLONOPIN [Suspect]
     Indication: ANXIETY
     Dates: start: 20060101
  4. MIRAPEX [Concomitant]

REACTIONS (8)
  - AMNESIA [None]
  - CARDIAC DISORDER [None]
  - CONFUSIONAL STATE [None]
  - DRUG EFFECT DECREASED [None]
  - HYPOAESTHESIA ORAL [None]
  - MEDICATION ERROR [None]
  - PANIC REACTION [None]
  - TREMOR [None]
